FAERS Safety Report 26130070 (Version 1)
Quarter: 2025Q4

REPORT INFORMATION
  Report Type: Report from Study
  Country: AU (occurrence: AU)
  Receive Date: 20251208
  Receipt Date: 20251208
  Transmission Date: 20260117
  Serious: Yes (Other)
  Sender: ROCHE
  Company Number: AU-ROCHE-10000448751

PATIENT

DRUGS (1)
  1. BEVACIZUMAB [Suspect]
     Active Substance: BEVACIZUMAB
     Indication: Product used for unknown indication
     Route: 065
     Dates: start: 20240601, end: 20250731

REACTIONS (3)
  - Neutropenia [Unknown]
  - Myelosuppression [Unknown]
  - Thrombocytopenia [Unknown]
